FAERS Safety Report 5352275-2 (Version None)
Quarter: 2007Q2

REPORT INFORMATION
  Report Type: 
  Country: None (occurrence: None)
  Receive Date: 20070611
  Receipt Date: 20070604
  Transmission Date: 20071010
  Serious: Yes (Hospitalization)
  Sender: FDA-Public Use
  Company Number: US-AVENTIS-200714097US

PATIENT
  Age: 74 Year
  Sex: Male

DRUGS (1)
  1. TAXOTERE [Suspect]
     Indication: PROSTATE CANCER
     Dosage: DOSE: UNK
     Dates: start: 20070119, end: 20070119

REACTIONS (8)
  - BLOOD PRESSURE INCREASED [None]
  - CARDIAC ARREST [None]
  - CARDIAC FLUTTER [None]
  - CONDITION AGGRAVATED [None]
  - GAIT DISTURBANCE [None]
  - PAIN IN EXTREMITY [None]
  - RENAL FAILURE [None]
  - SWELLING [None]
